FAERS Safety Report 19973502 (Version 3)
Quarter: 2021Q4

REPORT INFORMATION
  Report Type: Report from Study
  Country: GB (occurrence: GB)
  Receive Date: 20211020
  Receipt Date: 20211029
  Transmission Date: 20220303
  Serious: Yes (Hospitalization)
  Sender: FDA-Public Use
  Company Number: GB-CELGENE-GBR-20211003128

PATIENT
  Age: 86 Year
  Sex: Female
  Weight: 71.2 kg

DRUGS (3)
  1. REVLIMID [Suspect]
     Active Substance: LENALIDOMIDE
     Indication: Plasma cell myeloma
     Dosage: 10 MILLIGRAM
     Route: 048
     Dates: start: 20210818
  2. DEXAMETHASONE [Suspect]
     Active Substance: DEXAMETHASONE
     Indication: Plasma cell myeloma
     Dosage: 10 MILLIGRAM
     Route: 048
     Dates: start: 20210818
  3. IXAZOMIB [Suspect]
     Active Substance: IXAZOMIB
     Indication: Plasma cell myeloma
     Route: 048
     Dates: start: 20210818

REACTIONS (1)
  - Skin ulcer [Not Recovered/Not Resolved]

NARRATIVE: CASE EVENT DATE: 20211001
